FAERS Safety Report 25905023 (Version 1)
Quarter: 2025Q4

REPORT INFORMATION
  Report Type: Spontaneous
  Country: US (occurrence: US)
  Receive Date: 20251010
  Receipt Date: 20251010
  Transmission Date: 20260118
  Serious: Yes (Other)
  Sender: MERCK SHARP & DOHME LLC
  Company Number: US-009507513-2336679

PATIENT
  Age: 53 Year
  Sex: Male

DRUGS (1)
  1. TEMODAR [Suspect]
     Active Substance: TEMOZOLOMIDE
     Indication: Glioblastoma
     Route: 048
     Dates: start: 20250806

REACTIONS (3)
  - Platelet transfusion [Unknown]
  - White blood cell count decreased [Unknown]
  - Increased dose administered [Unknown]

NARRATIVE: CASE EVENT DATE: 20250101
